FAERS Safety Report 8322384 (Version 2)
Quarter: 2014Q1

REPORT INFORMATION
  Report Type: Spontaneous
  Country: TR (occurrence: TR)
  Receive Date: 20120105
  Receipt Date: 20140102
  Transmission Date: 20141002
  Serious: Yes (Death)
  Sender: FDA-Public Use
  Company Number: TR-JNJFOC-20120100155

PATIENT
  Age: 22 Year
  Sex: Male

DRUGS (5)
  1. INVEGA [Suspect]
     Indication: SCHIZOPHRENIA
     Route: 048
     Dates: start: 201104
  2. INVEGA [Suspect]
     Indication: SCHIZOPHRENIA
     Route: 048
     Dates: start: 201006
  3. ZELDOX [Concomitant]
     Indication: SCHIZOPHRENIA
     Route: 065
  4. LAMICTAL [Concomitant]
     Indication: PRODUCT USED FOR UNKNOWN INDICATION
     Route: 065
  5. PAXIL [Concomitant]
     Indication: PRODUCT USED FOR UNKNOWN INDICATION
     Route: 065

REACTIONS (1)
  - Completed suicide [Fatal]
